FAERS Safety Report 13877066 (Version 3)
Quarter: 2017Q3

REPORT INFORMATION
  Report Type: Report from Study
  Country: US (occurrence: US)
  Receive Date: 20170817
  Receipt Date: 20170913
  Transmission Date: 20171127
  Serious: Yes (Hospitalization)
  Sender: FDA-Public Use
  Company Number: US-JNJFOC-20170717640

PATIENT
  Age: 84 Year
  Sex: Male

DRUGS (17)
  1. IMBRUVICA [Suspect]
     Active Substance: IBRUTINIB
     Indication: CALCULUS URINARY
     Route: 048
     Dates: start: 20170519, end: 201707
  2. IMBRUVICA [Suspect]
     Active Substance: IBRUTINIB
     Indication: GASTROINTESTINAL HAEMORRHAGE
     Route: 048
     Dates: start: 20170815
  3. IMBRUVICA [Suspect]
     Active Substance: IBRUTINIB
     Indication: CHRONIC LYMPHOCYTIC LEUKAEMIA
     Route: 048
     Dates: start: 20170815
  4. TOPROL XL [Concomitant]
     Active Substance: METOPROLOL SUCCINATE
  5. IMBRUVICA [Suspect]
     Active Substance: IBRUTINIB
     Indication: CALCULUS URINARY
     Route: 048
     Dates: start: 20170520
  6. IMBRUVICA [Suspect]
     Active Substance: IBRUTINIB
     Indication: CHRONIC LYMPHOCYTIC LEUKAEMIA
     Route: 048
     Dates: start: 20170519, end: 201707
  7. DIGOXIN. [Concomitant]
     Active Substance: DIGOXIN
  8. IMBRUVICA [Suspect]
     Active Substance: IBRUTINIB
     Indication: CALCULUS URINARY
     Route: 048
     Dates: start: 20170815
  9. LOVASTATIN. [Concomitant]
     Active Substance: LOVASTATIN
  10. PANTOPRAZOLE SODIUM. [Concomitant]
     Active Substance: PANTOPRAZOLE SODIUM
  11. LORAZEPAM. [Concomitant]
     Active Substance: LORAZEPAM
  12. IMBRUVICA [Suspect]
     Active Substance: IBRUTINIB
     Indication: CHRONIC LYMPHOCYTIC LEUKAEMIA
     Route: 048
     Dates: start: 20170520
  13. ALLOPURINOL. [Concomitant]
     Active Substance: ALLOPURINOL
  14. WARFARIN [Interacting]
     Active Substance: WARFARIN
     Indication: PRODUCT USED FOR UNKNOWN INDICATION
     Route: 048
  15. CARTIA XT [Concomitant]
     Active Substance: DILTIAZEM HYDROCHLORIDE
  16. IMBRUVICA [Suspect]
     Active Substance: IBRUTINIB
     Indication: GASTROINTESTINAL HAEMORRHAGE
     Route: 048
     Dates: start: 20170520
  17. IMBRUVICA [Suspect]
     Active Substance: IBRUTINIB
     Indication: GASTROINTESTINAL HAEMORRHAGE
     Route: 048
     Dates: start: 20170519, end: 201707

REACTIONS (7)
  - Haematuria [Unknown]
  - Product use in unapproved indication [Unknown]
  - Drug interaction [Unknown]
  - Haemoptysis [Unknown]
  - Dyspnoea [Unknown]
  - Cardiac failure congestive [Recovered/Resolved]
  - Off label use [Unknown]

NARRATIVE: CASE EVENT DATE: 20170520
